FAERS Safety Report 10213352 (Version 1)
Quarter: 2014Q2

REPORT INFORMATION
  Report Type: Spontaneous
  Country: CN (occurrence: None)
  Receive Date: 20140529
  Receipt Date: 20140529
  Transmission Date: 20141212
  Serious: Yes (Death, Other)
  Sender: FDA-Public Use
  Company Number: FK201401958

PATIENT
  Age: 48 Year
  Sex: Female

DRUGS (4)
  1. DEXAMETHASONE [Suspect]
     Indication: PLASMA CELL MYELOMA
     Dosage: UNKNOWN, TWO CYCLES, UNKNOWN
  2. DEXAMETHASONE [Suspect]
     Indication: PERIPHERAL T-CELL LYMPHOMA UNSPECIFIED
     Dosage: UNKNOWN, TWO CYCLES, UNKNOWN
  3. BORTEZOMIB (BORTEZOMIB) [Suspect]
     Indication: PLASMA CELL MYELOMA
     Dosage: UNKNOWN, TWO CYCLES, UNKNOWN
  4. BORTEZOMIB (BORTEZOMIB) [Suspect]
     Indication: PERIPHERAL T-CELL LYMPHOMA UNSPECIFIED
     Dosage: UNKNOWN, TWO CYCLES, UNKNOWN

REACTIONS (7)
  - Abdominal pain [None]
  - Diarrhoea [None]
  - Respiratory failure [None]
  - Circulatory collapse [None]
  - Anaemia [None]
  - Electrolyte imbalance [None]
  - Hypoproteinaemia [None]
